FAERS Safety Report 10729123 (Version 1)
Quarter: 2015Q1

REPORT INFORMATION
  Report Type: Spontaneous
  Country: US (occurrence: None)
  Receive Date: 20150120
  Receipt Date: 20150120
  Transmission Date: 20150721
  Serious: Yes (Disabling)
  Sender: FDA-Public Use
  Company Number: None

PATIENT
  Age: 31 Year
  Sex: Female
  Weight: 77.11 kg

DRUGS (1)
  1. BELVIQ [Suspect]
     Active Substance: LORCASERIN HYDROCHLORIDE
     Indication: WEIGHT DECREASED
     Dosage: 1 PILL
     Route: 048
     Dates: start: 20140915, end: 20141201

REACTIONS (6)
  - Arthralgia [None]
  - Screaming [None]
  - Tendon pain [None]
  - Joint swelling [None]
  - Rheumatoid arthritis [None]
  - Musculoskeletal stiffness [None]

NARRATIVE: CASE EVENT DATE: 20141001
